FAERS Safety Report 6972759-0 (Version None)
Quarter: 2010Q3

REPORT INFORMATION
  Report Type: 
  Country: None (occurrence: None)
  Receive Date: 20100909
  Receipt Date: 20100903
  Transmission Date: 20110219
  Serious: Yes (Death)
  Sender: FDA-Public Use
  Company Number: US-GENZYME-CLOF-1001080

PATIENT
  Sex: Female
  Weight: 54.2 kg

DRUGS (1)
  1. CLOLAR [Suspect]
     Indication: ACUTE MYELOID LEUKAEMIA
     Dosage: 47 MG, UNK
     Route: 065
     Dates: start: 20100615, end: 20100619

REACTIONS (3)
  - FEBRILE NEUTROPENIA [None]
  - RESPIRATORY DISTRESS [None]
  - STAPHYLOCOCCAL BACTERAEMIA [None]
